FAERS Safety Report 5371621-7 (Version None)
Quarter: 2007Q2

REPORT INFORMATION
  Report Type: 
  Country: None (occurrence: None)
  Receive Date: 20070627
  Receipt Date: 20070620
  Transmission Date: 20071010
  Serious: Yes (Other)
  Sender: FDA-Public Use
  Company Number: PHBS2007BR10442

PATIENT
  Age: 56 Year
  Sex: Female
  Weight: 98 kg

DRUGS (2)
  1. VOLTAREN [Suspect]
     Indication: INFECTION
     Dosage: 75 MG, UNK
  2. SERTRALINE [Concomitant]
     Indication: ANXIETY
     Dosage: 50 MG, UNK
     Route: 048

REACTIONS (3)
  - ANGIOPATHY [None]
  - BLOOD PRESSURE INCREASED [None]
  - HAEMORRHAGE [None]
